FAERS Safety Report 11188636 (Version 1)
Quarter: 2015Q2

REPORT INFORMATION
  Report Type: Spontaneous
  Country: FI (occurrence: FI)
  Receive Date: 20150615
  Receipt Date: 20150615
  Transmission Date: 20150821
  Serious: Yes (Hospitalization, Disabling, Other)
  Sender: FDA-Public Use
  Company Number: FI-MERCK-1505FIN002364

PATIENT
  Age: 16 Year
  Sex: Female

DRUGS (6)
  1. JANUVIA [Suspect]
     Active Substance: SITAGLIPTIN PHOSPHATE
     Indication: TYPE 2 DIABETES MELLITUS
     Dosage: UNK
     Route: 048
     Dates: start: 20141128, end: 20150415
  2. MONTELUKAST MSD [Concomitant]
     Active Substance: MONTELUKAST SODIUM
     Dosage: 10 MG,UNK
     Route: 048
     Dates: start: 20140325
  3. DIFORMIN [Concomitant]
     Active Substance: METFORMIN HYDROCHLORIDE
     Dosage: 1.5 G, TWICE DAILY
     Route: 048
     Dates: start: 20120315, end: 20150414
  4. SYMBICORT [Concomitant]
     Active Substance: BUDESONIDE\FORMOTEROL FUMARATE DIHYDRATE
     Dosage: ONE INH. TWICE DAILY
     Route: 055
     Dates: start: 20130213
  5. SERONIL [Concomitant]
     Active Substance: FLUOXETINE HYDROCHLORIDE
     Dosage: 20 MG, UNK
     Route: 048
  6. DIFORMIN [Concomitant]
     Active Substance: METFORMIN HYDROCHLORIDE
     Dosage: 1.5 G, BID
     Route: 048
     Dates: start: 20150425

REACTIONS (2)
  - Pancreatitis [Recovered/Resolved]
  - Blood insulin decreased [Not Recovered/Not Resolved]

NARRATIVE: CASE EVENT DATE: 2015
